FAERS Safety Report 7414485-X (Version None)
Quarter: 2011Q2

REPORT INFORMATION
  Report Type: 
  Country: None (occurrence: None)
  Receive Date: 20110411
  Receipt Date: 20110411
  Transmission Date: 20111010
  Serious: Yes (Other)
  Sender: FDA-Public Use
  Company Number: None

PATIENT
  Age: 55 Year
  Sex: Male
  Weight: 90.7194 kg

DRUGS (1)
  1. DOXYCYCLINE HYCLATE [Suspect]
     Indication: INFERTILITY
     Dates: start: 20110406, end: 20110410

REACTIONS (1)
  - SUPRAVENTRICULAR TACHYCARDIA [None]
